FAERS Safety Report 9516730 (Version 2)
Quarter: 2013Q3

REPORT INFORMATION
  Report Type: Spontaneous
  Country: JP (occurrence: JP)
  Receive Date: 20130911
  Receipt Date: 20130911
  Transmission Date: 20140515
  Serious: Yes (Hospitalization)
  Sender: FDA-Public Use
  Company Number: JP-ROCHE-1215406

PATIENT
  Age: 71 Year
  Sex: Male
  Weight: 67 kg

DRUGS (10)
  1. PEGASYS [Suspect]
     Indication: CHRONIC HEPATITIS C
     Route: 058
     Dates: start: 20130205, end: 20130401
  2. COPEGUS [Suspect]
     Indication: CHRONIC HEPATITIS C
     Route: 048
     Dates: start: 20130205, end: 20130401
  3. COPEGUS [Suspect]
     Indication: CHRONIC HEPATITIS C
     Route: 048
     Dates: start: 20130402, end: 20130407
  4. PRAZAXA [Concomitant]
     Route: 048
  5. TAMBOCOR [Concomitant]
     Route: 048
  6. CILOSTAZOL [Concomitant]
     Route: 048
  7. BLOPRESS [Concomitant]
     Dosage: 8MG-0-4MG
     Route: 048
  8. NIFEDIPINE CR [Concomitant]
     Dosage: 40MG-0-20MG
     Route: 048
  9. IMIDAPRIL HYDROCHLORIDE [Concomitant]
     Route: 048
  10. EPINASTINE [Concomitant]
     Route: 048

REACTIONS (4)
  - Rash generalised [Recovering/Resolving]
  - Dyspnoea [Recovering/Resolving]
  - Malaise [Recovering/Resolving]
  - Anaemia [Unknown]
